FAERS Safety Report 9748790 (Version 3)
Quarter: 2015Q3

REPORT INFORMATION
  Report Type: Spontaneous
  Country: US (occurrence: US)
  Receive Date: 20131212
  Receipt Date: 20150924
  Transmission Date: 20151125
  Serious: No
  Sender: FDA-Public Use
  Company Number: US-INCYTE CORPORATION-2013IN001902

PATIENT
  Age: 70 Year
  Sex: Female

DRUGS (9)
  1. HYDREA [Suspect]
     Active Substance: HYDROXYUREA
  2. SYNTHROID [Concomitant]
     Active Substance: LEVOTHYROXINE SODIUM
  3. ASPIRIN. [Concomitant]
     Active Substance: ASPIRIN
  4. LORAZEPAM. [Concomitant]
     Active Substance: LORAZEPAM
  5. NASONEX [Concomitant]
     Active Substance: MOMETASONE FUROATE
  6. JAKAFI [Suspect]
     Active Substance: RUXOLITINIB
     Dosage: 10 MG, BID
     Route: 048
     Dates: start: 20130830
  7. JAKAFI [Suspect]
     Active Substance: RUXOLITINIB
     Dosage: 20 MG, QD
     Route: 048
  8. ALLEGRA [Concomitant]
     Active Substance: FEXOFENADINE HYDROCHLORIDE
  9. JAKAFI [Suspect]
     Active Substance: RUXOLITINIB
     Indication: POLYCYTHAEMIA VERA
     Dosage: 5 MG, BID
     Route: 048
     Dates: start: 20130801, end: 201308

REACTIONS (6)
  - Platelet count increased [Recovered/Resolved]
  - White blood cell count increased [Unknown]
  - Drug administration error [Unknown]
  - Headache [Recovered/Resolved]
  - Blood count abnormal [Unknown]
  - Dizziness [Recovered/Resolved]

NARRATIVE: CASE EVENT DATE: 2013
